FAERS Safety Report 21256046 (Version 1)
Quarter: 2022Q3

REPORT INFORMATION
  Report Type: Spontaneous
  Country: BR (occurrence: BR)
  Receive Date: 20220825
  Receipt Date: 20220825
  Transmission Date: 20221027
  Serious: Yes (Other)
  Sender: FDA-Public Use
  Company Number: BR-BIOMARINAP-BR-2022-144052

PATIENT

DRUGS (1)
  1. VOXZOGO [Suspect]
     Active Substance: VOSORITIDE
     Indication: Osteochondrodysplasia
     Dosage: 0.3 MILLIGRAM, QD
     Route: 058
     Dates: start: 20220520

REACTIONS (7)
  - Deafness [Recovered/Resolved]
  - Thalassaemia [Recovered/Resolved]
  - Anaemia [Recovered/Resolved]
  - Alopecia [Recovered/Resolved]
  - Otitis media [Recovered/Resolved]
  - COVID-19 [Recovered/Resolved]
  - Speech disorder developmental [Recovered/Resolved]

NARRATIVE: CASE EVENT DATE: 20200101
